FAERS Safety Report 10483575 (Version 1)
Quarter: 2014Q3

REPORT INFORMATION
  Report Type: Spontaneous
  Country: FR (occurrence: FR)
  Receive Date: 20140930
  Receipt Date: 20140930
  Transmission Date: 20150326
  Serious: No
  Sender: FDA-Public Use
  Company Number: FR-JNJFOC-20140914696

PATIENT
  Age: 6 Year
  Sex: Female
  Weight: 20 kg

DRUGS (1)
  1. DUROGESIC [Suspect]
     Active Substance: FENTANYL
     Indication: PRODUCT USED FOR UNKNOWN INDICATION
     Dosage: PATCH CUT IN A HALF
     Route: 062

REACTIONS (3)
  - Wrong technique in drug usage process [Unknown]
  - Drug prescribing error [Unknown]
  - Pain [Unknown]
